FAERS Safety Report 5792855-3 (Version None)
Quarter: 2008Q2

REPORT INFORMATION
  Report Type: 
  Country: None (occurrence: None)
  Receive Date: 20080624
  Receipt Date: 20080612
  Transmission Date: 20081010
  Serious: Yes (Hospitalization, Disabling)
  Sender: FDA-Public Use
  Company Number: 002#1#2008-00480

PATIENT
  Age: 84 Year
  Sex: Male
  Weight: 69.4003 kg

DRUGS (13)
  1. NEUPRO [Suspect]
     Indication: PARKINSON'S DISEASE
     Dosage: 2MG/24H, 1IN 1 D,TRANSDERMAL
     Route: 062
     Dates: end: 20080503
  2. MIRAPEX [Suspect]
     Indication: PARKINSON'S DISEASE
     Dosage: .5MG,3 IN 1 D,ORAL
     Route: 048
     Dates: start: 20080501
  3. CARBIDOPA AND LEVODOPA [Concomitant]
  4. GLYBURIDE [Concomitant]
  5. ACTIS [Concomitant]
  6. JANUVIA [Concomitant]
  7. AVODART [Concomitant]
  8. CYMBALTA [Concomitant]
  9. ASPIRIN [Concomitant]
  10. SENOKOT [Concomitant]
  11. SIMVASTATIN [Concomitant]
  12. LIDODERM [Concomitant]
  13. LANTUS [Concomitant]

REACTIONS (5)
  - DYSPHAGIA [None]
  - FALL [None]
  - GAIT DISTURBANCE [None]
  - HALLUCINATION, VISUAL [None]
  - IMPAIRED SELF-CARE [None]
